FAERS Safety Report 5901817-4 (Version None)
Quarter: 2008Q3

REPORT INFORMATION
  Report Type: 
  Country: None (occurrence: None)
  Receive Date: 20080925
  Receipt Date: 20080915
  Transmission Date: 20090109
  Serious: Yes (Hospitalization)
  Sender: FDA-Public Use
  Company Number: 2008AL010523

PATIENT
  Age: 77 Year
  Sex: Male

DRUGS (4)
  1. DILTIAZEM HYDROCHLORIDE [Suspect]
  2. PROPRANOLOL HCL [Suspect]
  3. TIMOLOL [Concomitant]
  4. XALATAN [Concomitant]

REACTIONS (10)
  - ATRIOVENTRICULAR BLOCK COMPLETE [None]
  - BLOOD GLUCOSE INCREASED [None]
  - BLOOD PRESSURE DECREASED [None]
  - DIZZINESS [None]
  - HYPERKALAEMIA [None]
  - METABOLIC ACIDOSIS [None]
  - NODAL RHYTHM [None]
  - OBSTRUCTIVE UROPATHY [None]
  - PRESYNCOPE [None]
  - SINUS BRADYCARDIA [None]
